FAERS Safety Report 14697613 (Version 1)
Quarter: 2018Q1

REPORT INFORMATION
  Report Type: Spontaneous
  Country: US (occurrence: US)
  Receive Date: 20180330
  Receipt Date: 20180330
  Transmission Date: 20180509
  Serious: No
  Sender: FDA-Public Use
  Company Number: US-SA-2017SA214398

PATIENT
  Age: 49 Year
  Sex: Female

DRUGS (1)
  1. ALLEGRA ALLERGY [Suspect]
     Active Substance: FEXOFENADINE HYDROCHLORIDE
     Route: 048
     Dates: start: 201710

REACTIONS (4)
  - Insomnia [Unknown]
  - Agitation [Unknown]
  - Energy increased [Unknown]
  - Drug intolerance [Unknown]

NARRATIVE: CASE EVENT DATE: 201710
